FAERS Safety Report 8353949-1 (Version None)
Quarter: 2012Q2

REPORT INFORMATION
  Report Type: 
  Country: None (occurrence: None)
  Receive Date: 20120511
  Receipt Date: 20120503
  Transmission Date: 20120825
  Serious: Yes (Other)
  Sender: FDA-Public Use
  Company Number: US-ASTRAZENECA-2012SE28966

PATIENT
  Age: 56 Year
  Sex: Male

DRUGS (3)
  1. HUMALOG [Concomitant]
  2. NEXIUM [Suspect]
     Route: 048
  3. LANTUS [Concomitant]

REACTIONS (1)
  - LUNG INFECTION [None]
